FAERS Safety Report 12766300 (Version 1)
Quarter: 2016Q3

REPORT INFORMATION
  Report Type: Spontaneous
  Country: US (occurrence: US)
  Receive Date: 20160917
  Receipt Date: 20160917
  Transmission Date: 20161109
  Serious: Yes (Hospitalization)
  Sender: FDA-Public Use
  Company Number: None

PATIENT
  Sex: Female

DRUGS (8)
  1. HYDROMORPHONE [Concomitant]
     Active Substance: HYDROMORPHONE
  2. GABAPENTIN. [Concomitant]
     Active Substance: GABAPENTIN
  3. SENNALAX-S [Concomitant]
     Active Substance: DOCUSATE SODIUM\SENNOSIDES
  4. FENTANYL. [Concomitant]
     Active Substance: FENTANYL
  5. CELECOXIB. [Concomitant]
     Active Substance: CELECOXIB
  6. AFINITOR [Suspect]
     Active Substance: EVEROLIMUS
     Indication: NEOPLASM MALIGNANT
     Route: 048
     Dates: start: 20160816
  7. PROCHLORPERAZINE. [Concomitant]
     Active Substance: PROCHLORPERAZINE
  8. METHADONE [Concomitant]
     Active Substance: METHADONE HYDROCHLORIDE

REACTIONS (2)
  - Therapy cessation [None]
  - Infection [None]

NARRATIVE: CASE EVENT DATE: 2016
